FAERS Safety Report 5276469-X (Version None)
Quarter: 2007Q1

REPORT INFORMATION
  Report Type: 
  Country: None (occurrence: None)
  Receive Date: 20061213
  Receipt Date: 20031209
  Transmission Date: 20070707
  Serious: Yes (Life-Threatening, Hospitalization)
  Sender: FDA-Public Use
  Company Number: 2003UW16383

PATIENT
  Age: 31 Year
  Sex: Female

DRUGS (5)
  1. SEROQUEL [Suspect]
     Indication: AGGRESSION
     Dosage: 25 MG QAM / 50 MG NOON
  2. SEROQUEL [Suspect]
     Indication: AGITATION
     Dosage: 25 MG QAM / 50 MG NOON
  3. LEXAPRO [Concomitant]
  4. WELLBUTRIN [Concomitant]
  5. TRAZODONE HCL [Concomitant]

REACTIONS (1)
  - NEUROLEPTIC MALIGNANT SYNDROME [None]
